FAERS Safety Report 9931522 (Version 1)
Quarter: 2014Q1

REPORT INFORMATION
  Report Type: Report from Study
  Country: US (occurrence: US)
  Receive Date: 20140228
  Receipt Date: 20140228
  Transmission Date: 20141002
  Serious: Yes (Other)
  Sender: FDA-Public Use
  Company Number: US-ROCHE-1339219

PATIENT
  Age: 89 Year
  Sex: Female

DRUGS (14)
  1. LUCENTIS [Suspect]
     Indication: AGE-RELATED MACULAR DEGENERATION
     Dosage: OS
     Route: 050
     Dates: start: 20090416
  2. LUCENTIS [Suspect]
     Dosage: OD
     Route: 050
     Dates: start: 20110606
  3. AVASTIN [Suspect]
     Indication: AGE-RELATED MACULAR DEGENERATION
     Dosage: OD
     Route: 065
     Dates: start: 20061002
  4. BABY ASPIRIN [Concomitant]
     Route: 065
  5. CADUET [Concomitant]
     Route: 065
  6. FISH OIL [Concomitant]
     Route: 065
  7. GLUCOSAMINE WITH MSM [Concomitant]
  8. GLIBENCLAMIDE [Concomitant]
     Route: 065
  9. PREDNISOLONE ACETATE [Concomitant]
     Dosage: 1 GTT Q2H OS WHILE AWAKE
     Route: 047
     Dates: end: 20110615
  10. VIGAMOX [Concomitant]
  11. DUREZOL [Concomitant]
     Dosage: OS
     Route: 065
     Dates: start: 20110615
  12. TYLOX [Concomitant]
     Dosage: PRN
     Route: 065
     Dates: start: 20110615
  13. TYLENOL [Concomitant]
     Dosage: PRN
     Route: 065
     Dates: start: 20110615
  14. ENALAPRIL MALEATE [Concomitant]
     Route: 065

REACTIONS (14)
  - Colon cancer [Unknown]
  - Detachment of macular retinal pigment epithelium [Unknown]
  - Lacrimation increased [Unknown]
  - Headache [Recovering/Resolving]
  - Visual impairment [Unknown]
  - Hypersomnia [Unknown]
  - Off label use [Unknown]
  - Eye injury [Unknown]
  - Deafness [Unknown]
  - Cutis laxa [Unknown]
  - Eyelid ptosis [Unknown]
  - Hypertension [Unknown]
  - Blood cholesterol increased [Unknown]
  - Depression [Unknown]
